FAERS Safety Report 8454416-7 (Version None)
Quarter: 2012Q2

REPORT INFORMATION
  Report Type: 
  Country: None (occurrence: None)
  Receive Date: 20120621
  Receipt Date: 20120615
  Transmission Date: 20120825
  Serious: Yes (Hospitalization)
  Sender: FDA-Public Use
  Company Number: US-BIOGENIDEC-2012BI021719

PATIENT
  Age: 59 Year
  Sex: Female

DRUGS (3)
  1. AVONEX [Suspect]
     Indication: MULTIPLE SCLEROSIS
     Route: 030
     Dates: start: 20000901, end: 20030801
  2. AVONEX [Suspect]
     Route: 030
     Dates: start: 20030901
  3. JANUVIA [Concomitant]
     Indication: DIABETES MELLITUS

REACTIONS (4)
  - INFECTION [None]
  - DYSARTHRIA [None]
  - DIABETES MELLITUS [None]
  - BLOOD GLUCOSE DECREASED [None]
